FAERS Safety Report 11110044 (Version 1)
Quarter: 2015Q2

REPORT INFORMATION
  Report Type: Spontaneous
  Country: US (occurrence: US)
  Receive Date: 20150513
  Receipt Date: 20150513
  Transmission Date: 20150821
  Serious: No
  Sender: FDA-Public Use
  Company Number: US-009507513-1505USA001994

PATIENT
  Age: 71 Year
  Sex: Female

DRUGS (2)
  1. FOSAMAX [Suspect]
     Active Substance: ALENDRONATE SODIUM
     Dosage: ONCE WEEKLY 70MG DOSING
     Route: 048
     Dates: start: 2006, end: 2008
  2. FOSAMAX [Suspect]
     Active Substance: ALENDRONATE SODIUM
     Indication: OSTEOPOROSIS
     Dosage: UNK, EVERYDAY
     Route: 048
     Dates: start: 2004, end: 2006

REACTIONS (1)
  - Drug effect incomplete [Recovered/Resolved]
